FAERS Safety Report 7162289-8 (Version None)
Quarter: 2010Q4

REPORT INFORMATION
  Report Type: 
  Country: None (occurrence: None)
  Receive Date: 20101215
  Receipt Date: 20101208
  Transmission Date: 20110411
  Serious: Yes (Hospitalization, Other)
  Sender: FDA-Public Use
  Company Number: JP-ASTRAZENECA-2010SE58357

PATIENT
  Age: 77 Year
  Sex: Female
  Weight: 44 kg

DRUGS (11)
  1. IRESSA [Suspect]
     Indication: LUNG ADENOCARCINOMA
     Route: 048
     Dates: start: 20090818, end: 20091021
  2. LOXONIN [Suspect]
     Indication: CANCER PAIN
     Route: 048
     Dates: start: 20090812, end: 20091021
  3. MUCOSTA [Concomitant]
     Indication: GASTRITIS
     Route: 048
     Dates: start: 20090812, end: 20091021
  4. PACIF [Concomitant]
     Indication: CANCER PAIN
     Route: 048
     Dates: start: 20090812
  5. MAGMITT [Concomitant]
     Indication: CONSTIPATION
     Route: 048
     Dates: start: 20090812, end: 20090915
  6. SENNARIDE [Concomitant]
     Indication: CONSTIPATION
     Route: 048
     Dates: start: 20090812, end: 20090915
  7. DECADRON [Concomitant]
     Indication: MALAISE
     Route: 048
     Dates: start: 20090812, end: 20090915
  8. GOODMIN [Concomitant]
     Indication: INSOMNIA
     Route: 048
     Dates: start: 20090824
  9. GASTROM [Concomitant]
     Indication: GASTRITIS
     Route: 048
     Dates: start: 20090826, end: 20091020
  10. EURODIN [Concomitant]
     Indication: INSOMNIA
     Route: 048
     Dates: start: 20090831
  11. LASIX [Concomitant]
     Indication: OEDEMA
     Route: 048
     Dates: start: 20090903, end: 20090915

REACTIONS (3)
  - DECREASED APPETITE [None]
  - DIARRHOEA [None]
  - LUNG DISORDER [None]
